FAERS Safety Report 8984177 (Version 1)
Quarter: 2012Q4

REPORT INFORMATION
  Report Type: Spontaneous
  Country: US (occurrence: None)
  Receive Date: 20121213
  Receipt Date: 20121213
  Transmission Date: 20130627
  Serious: Yes (Hospitalization, Other)
  Sender: FDA-Public Use
  Company Number: AUR-APL-2012-05214

PATIENT
  Age: 74 Year
  Sex: Female
  Weight: 78 kg

DRUGS (4)
  1. METOPROLOL (METOPROLOL) [Suspect]
     Indication: CARDIAC DISORDER
     Dates: start: 2012, end: 2012
  2. LIPITOR (ATORVASTATIN CALCIUM) [Suspect]
     Indication: HIGH CHOLESTEROL
     Dates: end: 2002
  3. BENAZEPRIL [Suspect]
     Indication: HIGH CHOLESTEROL
     Dates: start: 2012, end: 20121126
  4. CARVEDILOL [Suspect]

REACTIONS (3)
  - Weight increased [None]
  - Product quality issue [None]
  - Implantable defibrillator insertion [None]
